FAERS Safety Report 18854564 (Version 2)
Quarter: 2021Q1

REPORT INFORMATION
  Report Type: Spontaneous
  Country: CA (occurrence: CA)
  Receive Date: 20210205
  Receipt Date: 20210331
  Transmission Date: 20210420
  Serious: Yes (Other)
  Sender: FDA-Public Use
  Company Number: CA-PFIZER INC-2019423253

PATIENT
  Age: 39 Year
  Sex: Female

DRUGS (9)
  1. XELJANZ [Suspect]
     Active Substance: TOFACITINIB CITRATE
     Dosage: 5 MG, 2X/DAY
     Route: 048
     Dates: end: 2021
  2. PREDNISONE. [Concomitant]
     Active Substance: PREDNISONE
     Indication: COLITIS ULCERATIVE
     Dosage: 20 MG, 1X/DAY (HIGH DOSE)
     Route: 048
     Dates: start: 20190517
  3. XELJANZ [Suspect]
     Active Substance: TOFACITINIB CITRATE
     Indication: COLITIS ULCERATIVE
     Dosage: 5 MG, 2X/DAY
     Route: 048
     Dates: start: 20190613, end: 20200415
  4. XELJANZ [Suspect]
     Active Substance: TOFACITINIB CITRATE
     Dosage: 10 MG, 2X/DAY
     Route: 048
     Dates: start: 20200416
  5. ASPIRIN [ACETYLSALICYLIC ACID] [Concomitant]
     Active Substance: ASPIRIN
     Dosage: 80 MG, 1X/DAY (DURING A MEAL)
  6. REMICADE [Concomitant]
     Active Substance: INFLIXIMAB
     Indication: COLITIS ULCERATIVE
     Dosage: UNK (WILL BE STOPPED)
  7. SALOFALK [MESALAZINE] [Concomitant]
     Active Substance: MESALAMINE
     Dosage: UNK (MORNING AND NIGHT)
  8. XELJANZ [Suspect]
     Active Substance: TOFACITINIB CITRATE
     Dosage: 10 MG, 2X/DAY
     Route: 048
     Dates: start: 2021
  9. PREDNISONE. [Concomitant]
     Active Substance: PREDNISONE
     Dosage: 1 DF  (HIGH DOSE)
     Route: 048
     Dates: start: 20190517

REACTIONS (11)
  - Rhinorrhoea [Unknown]
  - Haematochezia [Unknown]
  - Frequent bowel movements [Recovered/Resolved]
  - Product dose omission in error [Unknown]
  - Rectal haemorrhage [Recovered/Resolved]
  - Mucous stools [Unknown]
  - Proctitis [Unknown]
  - Abdominal pain [Recovered/Resolved]
  - Infection [Unknown]
  - Nasopharyngitis [Not Recovered/Not Resolved]
  - Ear pain [Unknown]

NARRATIVE: CASE EVENT DATE: 202102
